FAERS Safety Report 22535569 (Version 3)
Quarter: 2023Q2

REPORT INFORMATION
  Report Type: Spontaneous
  Country: US (occurrence: US)
  Receive Date: 20230608
  Receipt Date: 20230627
  Transmission Date: 20230722
  Serious: Yes (Disabling, Other)
  Sender: FDA-Public Use
  Company Number: US-REGENERON PHARMACEUTICALS, INC.-2023-073015

PATIENT
  Sex: Male

DRUGS (5)
  1. EYLEA [Suspect]
     Active Substance: AFLIBERCEPT
     Indication: Neovascular age-related macular degeneration
     Dosage: 2 MG, 4-6 WEEKS, LEFT EYE (FORMULATION: PFS GERRESHEIMER)
     Dates: end: 20230530
  2. EYLEA [Suspect]
     Active Substance: AFLIBERCEPT
     Indication: Choroidal neovascularisation
  3. MINERALS\VITAMINS [Concomitant]
     Active Substance: MINERALS\VITAMINS
     Indication: Product used for unknown indication
     Dosage: SOFTGEL, 2 BID, BY MOUTH
     Route: 048
  4. REFRESH [CARMELLOSE SODIUM] [Concomitant]
     Indication: Product used for unknown indication
     Dosage: 1 GTT (DROP), IN RIGHT EYE (OD), EVERY DAY
  5. AVASTIN [Concomitant]
     Active Substance: BEVACIZUMAB
     Indication: Antiangiogenic therapy
     Dosage: UNK UNK, ONE DOSE IN LEFT EYE
     Dates: start: 20230502, end: 20230502

REACTIONS (7)
  - Blindness unilateral [Recovering/Resolving]
  - Ocular hypertension [Recovered/Resolved]
  - Pathologic myopia [Unknown]
  - Endophthalmitis [Recovering/Resolving]
  - Pseudophakia [Unknown]
  - Mood altered [Unknown]
  - Vision blurred [Recovering/Resolving]

NARRATIVE: CASE EVENT DATE: 20230401
